FAERS Safety Report 15583367 (Version 1)
Quarter: 2018Q4

REPORT INFORMATION
  Report Type: Spontaneous
  Country: GB (occurrence: GB)
  Receive Date: 20181103
  Receipt Date: 20181103
  Transmission Date: 20190205
  Serious: Yes (Other)
  Sender: FDA-Public Use
  Company Number: GB-TEVA-2018-GB-971126

PATIENT
  Age: 12 Year
  Sex: Female
  Weight: 89 kg

DRUGS (1)
  1. PHENOXYMETHYLPENICILLIN [Suspect]
     Active Substance: PENICILLIN V
     Indication: TONSILLITIS
     Dosage: 1500 MILLIGRAM DAILY;
     Route: 048
     Dates: start: 20180405, end: 20180416

REACTIONS (5)
  - Serum sickness-like reaction [Recovered/Resolved]
  - Malaise [Unknown]
  - Polyarthritis [Unknown]
  - Pyrexia [Unknown]
  - Urticaria [Unknown]

NARRATIVE: CASE EVENT DATE: 20180416
